APPROVED DRUG PRODUCT: IMATINIB MESYLATE
Active Ingredient: IMATINIB MESYLATE
Strength: EQ 100MG BASE
Dosage Form/Route: TABLET;ORAL
Application: A204285 | Product #001 | TE Code: AB
Applicant: TEVA PHARMACEUTICALS USA
Approved: Aug 4, 2016 | RLD: No | RS: No | Type: RX